FAERS Safety Report 7493436-6 (Version None)
Quarter: 2011Q2

REPORT INFORMATION
  Report Type: 
  Country: None (occurrence: None)
  Receive Date: 20110519
  Receipt Date: 20110519
  Transmission Date: 20111010
  Serious: No
  Sender: FDA-Public Use
  Company Number: None

PATIENT
  Sex: Male
  Weight: 152.8622 kg

DRUGS (3)
  1. PERCOCET [Suspect]
     Indication: HEPATIC CIRRHOSIS
     Dosage: ONE/TWO AS NEEDED BY MOUTH
     Route: 048
     Dates: start: 20110401, end: 20110501
  2. PERCOCET [Suspect]
     Indication: PAIN
     Dosage: ONE/TWO AS NEEDED BY MOUTH
     Route: 048
     Dates: start: 20110401, end: 20110501
  3. PERCOCET [Suspect]
     Indication: SPLENOMEGALY
     Dosage: ONE/TWO AS NEEDED BY MOUTH
     Route: 048
     Dates: start: 20110401, end: 20110501

REACTIONS (8)
  - HUNGER [None]
  - WEIGHT INCREASED [None]
  - IRRITABILITY [None]
  - ABDOMINAL DISTENSION [None]
  - DEPRESSED MOOD [None]
  - PAIN [None]
  - FATIGUE [None]
  - DRY MOUTH [None]
